FAERS Safety Report 5713857-9 (Version None)
Quarter: 2008Q2

REPORT INFORMATION
  Report Type: 
  Country: None (occurrence: None)
  Receive Date: 20080421
  Receipt Date: 20080407
  Transmission Date: 20081010
  Serious: Yes (Other)
  Sender: FDA-Public Use
  Company Number: WAES 0804ESP00018

PATIENT
  Age: 43 Year
  Sex: Male

DRUGS (11)
  1. ZOCOR [Suspect]
     Indication: HYPERTRIGLYCERIDAEMIA
     Dosage: 10 MG PO
     Route: 048
     Dates: start: 20050117, end: 20080319
  2. MARAVIROC [Suspect]
     Indication: HIV INFECTION
     Dosage: 150 MG/BID PO
     Route: 048
     Dates: start: 20070822, end: 20080319
  3. RITONAVIR [Suspect]
     Indication: HIV INFECTION
     Dosage: 100 MG/BID PO
     Route: 048
     Dates: start: 20041014, end: 20080319
  4. DARUNAVIR [Suspect]
     Indication: HIV INFECTION
     Dosage: 600 MG/BID PO
     Route: 048
     Dates: start: 20070822, end: 20080319
  5. EMTRICITABINE (+) TENOFOVIR DISOPROXIL FUMA [Suspect]
     Indication: HIV INFECTION
     Dosage: 200/250 MG/DAILY PO
     Route: 048
     Dates: start: 20070822, end: 20080319
  6. AMLODIPINE BESYLATE [Concomitant]
  7. ASPIRIN [Concomitant]
  8. ATENOLOL [Concomitant]
  9. CLOPIDOGREL BISULFATE [Concomitant]
  10. ENALAPRIL MALEATE [Concomitant]
  11. SULFAMETHOXAZOLE AND TRIMETHOPRIM [Concomitant]

REACTIONS (4)
  - ALANINE AMINOTRANSFERASE INCREASED [None]
  - ASPARTATE AMINOTRANSFERASE INCREASED [None]
  - GAMMA-GLUTAMYLTRANSFERASE INCREASED [None]
  - HEPATOTOXICITY [None]
